FAERS Safety Report 19712544 (Version 1)
Quarter: 2021Q3

REPORT INFORMATION
  Report Type: Spontaneous
  Country: US (occurrence: US)
  Receive Date: 20210817
  Receipt Date: 20210817
  Transmission Date: 20211014
  Serious: Yes (Other)
  Sender: FDA-Public Use
  Company Number: US-GILEAD-2021-0544409

PATIENT
  Age: 49 Year
  Sex: Female
  Weight: 46.5 kg

DRUGS (1)
  1. YESCARTA [Suspect]
     Active Substance: AXICABTAGENE CILOLEUCEL
     Indication: DIFFUSE LARGE B-CELL LYMPHOMA
     Dosage: SINGLE
     Route: 042
     Dates: start: 20210518, end: 20210518

REACTIONS (5)
  - Neurotoxicity [Unknown]
  - Fatigue [Unknown]
  - Immune effector cell-associated neurotoxicity syndrome [Unknown]
  - Decreased appetite [Unknown]
  - Cytokine release syndrome [Unknown]

NARRATIVE: CASE EVENT DATE: 20210524
